FAERS Safety Report 19720542 (Version 2)
Quarter: 2021Q4

REPORT INFORMATION
  Report Type: Spontaneous
  Country: None (occurrence: US)
  Receive Date: 20210818
  Receipt Date: 20211123
  Transmission Date: 20220303
  Serious: No
  Sender: FDA-Public Use
  Company Number: US-AKCEA THERAPEUTICS, INC.-2021IS001426

PATIENT
  Age: 76 Year
  Sex: Female
  Weight: 78.182 kg

DRUGS (17)
  1. TEGSEDI [Suspect]
     Active Substance: INOTERSEN SODIUM
     Indication: Hereditary neuropathic amyloidosis
     Route: 058
  2. DEVICE [Suspect]
     Active Substance: DEVICE
  3. METHOTREXATE [Concomitant]
     Active Substance: METHOTREXATE
     Route: 065
  4. CALCIUM\CHOLECALCIFEROL\MINERALS [Concomitant]
     Active Substance: CALCIUM\CHOLECALCIFEROL\MINERALS
     Route: 065
  5. DIFLUNISAL [Concomitant]
     Active Substance: DIFLUNISAL
     Route: 065
  6. HYDROCHLOROTHIAZIDE\LOSARTAN [Concomitant]
     Active Substance: HYDROCHLOROTHIAZIDE\LOSARTAN
     Route: 065
  7. GABAPENTIN [Concomitant]
     Active Substance: GABAPENTIN
     Route: 065
  8. NORTRIPTYLINE HYDROCHLORIDE [Concomitant]
     Active Substance: NORTRIPTYLINE HYDROCHLORIDE
     Route: 065
  9. METOPROLOL SUCCINATE [Concomitant]
     Active Substance: METOPROLOL SUCCINATE
     Route: 065
  10. FOLIC ACID [Concomitant]
     Active Substance: FOLIC ACID
     Route: 065
  11. MINERALS\VITAMINS [Concomitant]
     Active Substance: MINERALS\VITAMINS
     Route: 065
  12. VITAMIN D2 [Concomitant]
     Active Substance: ERGOCALCIFEROL
     Route: 065
  13. XIIDRA [Concomitant]
     Active Substance: LIFITEGRAST
     Route: 065
  14. FISH OIL [Concomitant]
     Active Substance: FISH OIL
     Route: 065
  15. VOLTAREN [Concomitant]
     Active Substance: DICLOFENAC SODIUM
     Route: 065
  16. TEGSEDI [Suspect]
     Active Substance: INOTERSEN SODIUM
     Route: 058
  17. CEPHALEXIN [Concomitant]
     Active Substance: CEPHALEXIN
     Route: 065

REACTIONS (4)
  - Fall [Unknown]
  - Mobility decreased [Unknown]
  - Walking aid user [Unknown]
  - Orthosis user [Unknown]

NARRATIVE: CASE EVENT DATE: 20210521
